FAERS Safety Report 21035045 (Version 1)
Quarter: 2022Q3

REPORT INFORMATION
  Report Type: Spontaneous
  Country: US (occurrence: None)
  Receive Date: 20220701
  Receipt Date: 20220701
  Transmission Date: 20221027
  Serious: Yes (Hospitalization)
  Sender: FDA-Public Use
  Company Number: None

PATIENT
  Sex: Female

DRUGS (19)
  1. ACTEMRA [Suspect]
     Active Substance: TOCILIZUMAB
     Indication: Rheumatoid arthritis
     Dosage: OTHER QUANTITY : 162 MG/0.9 ML;?FREQUENCY : DAILY;?
     Route: 058
     Dates: start: 20210209
  2. ACTEMRA [Suspect]
     Active Substance: TOCILIZUMAB
     Indication: Rheumatoid factor positive
  3. BD NESTABLE MIS [Concomitant]
  4. DICLOFENAC [Concomitant]
     Active Substance: DICLOFENAC
  5. EPINEPHRINE INJ [Concomitant]
  6. FLORAJEN DIGESIO [Concomitant]
  7. FOLIC ACID [Concomitant]
     Active Substance: FOLIC ACID
  8. FUROSEMIDE [Concomitant]
     Active Substance: FUROSEMIDE
  9. GABAPENTIN [Concomitant]
     Active Substance: GABAPENTIN
  10. LIDOCAINE CRE [Concomitant]
  11. LORATADINE [Concomitant]
     Active Substance: LORATADINE
  12. METHORTEXATE INJ [Concomitant]
  13. METHYLPREDNISOLONE [Concomitant]
     Active Substance: METHYLPREDNISOLONE
  14. OMEPRAZOLE [Concomitant]
     Active Substance: OMEPRAZOLE
  15. ONDANSETRON [Concomitant]
     Active Substance: ONDANSETRON
  16. OSCAL [Concomitant]
     Active Substance: CALCIUM CARBONATE
  17. OXYCODONE [Concomitant]
     Active Substance: OXYCODONE
  18. PREDNISONE [Concomitant]
     Active Substance: PREDNISONE
  19. VERAPAMIL [Concomitant]
     Active Substance: VERAPAMIL HYDROCHLORIDE

REACTIONS (2)
  - Surgery [None]
  - Therapy interrupted [None]
